FAERS Safety Report 6305101-9 (Version None)
Quarter: 2009Q3

REPORT INFORMATION
  Report Type: 
  Country: None (occurrence: None)
  Receive Date: 20090811
  Receipt Date: 20090731
  Transmission Date: 20100115
  Serious: Yes (Death)
  Sender: FDA-Public Use
  Company Number: KR-PFIZER INC-2009250330

PATIENT
  Age: 68 Year

DRUGS (16)
  1. VORICONAZOLE [Suspect]
     Indication: ASPERGILLOSIS
     Dosage: 400 MG, 2X/DAY
     Route: 048
     Dates: start: 20090603, end: 20090603
  2. VORICONAZOLE [Suspect]
     Dosage: 200 MG, 2X/DAY
     Route: 048
     Dates: start: 20090604, end: 20090616
  3. GASTER [Concomitant]
     Indication: GASTRIC ULCER
     Dosage: UNK
     Route: 042
     Dates: start: 20090428, end: 20090625
  4. ACETYLCYSTEINE [Concomitant]
     Dosage: UNK
     Dates: start: 20090602, end: 20090625
  5. TAZOCIN [Concomitant]
     Indication: ANTIBIOTIC THERAPY
     Dosage: UNK
     Route: 042
     Dates: start: 20090609, end: 20090626
  6. SEPTRIN [Concomitant]
     Indication: ANTIBIOTIC THERAPY
     Dosage: UNK
     Route: 048
     Dates: start: 20090602, end: 20090626
  7. BISOPROLOL FUMARATE [Concomitant]
     Indication: ANGINA PECTORIS
     Dosage: UNK
     Route: 048
     Dates: start: 20090415, end: 20090626
  8. LASIX [Concomitant]
     Indication: DIURETIC THERAPY
     Dosage: UNK
     Dates: start: 20090603, end: 20090625
  9. FOLIC ACID [Concomitant]
     Indication: ANAEMIA
     Route: 048
     Dates: start: 20090428, end: 20090616
  10. VANCOMYCIN [Concomitant]
     Indication: ANTIBIOTIC THERAPY
     Route: 042
     Dates: start: 20090530, end: 20090609
  11. PRIMAXIN [Concomitant]
     Indication: ANTIBIOTIC THERAPY
     Dosage: UNK
     Route: 042
     Dates: start: 20090511, end: 20090607
  12. CIPRO [Concomitant]
     Dosage: UNK
     Route: 042
     Dates: start: 20090609, end: 20090612
  13. LEVOCLOPERASTINE FENDIZOATE [Concomitant]
     Indication: COUGH
     Route: 048
     Dates: start: 20090524, end: 20090609
  14. GANATON [Concomitant]
     Indication: DYSPEPSIA
     Dosage: UNK
     Route: 048
     Dates: start: 20090523, end: 20090609
  15. ALL OTHER THERAPEUTIC PRODUCTS [Concomitant]
     Route: 048
     Dates: start: 20090503, end: 20090609
  16. LIPITOR [Concomitant]
     Indication: HYPERCHOLESTEROLAEMIA
     Dosage: UNK
     Route: 048
     Dates: start: 20090424, end: 20090609

REACTIONS (1)
  - ACUTE RESPIRATORY DISTRESS SYNDROME [None]
